FAERS Safety Report 7205915-7 (Version None)
Quarter: 2011Q1

REPORT INFORMATION
  Report Type: 
  Country: None (occurrence: None)
  Receive Date: 20110102
  Receipt Date: 20101227
  Transmission Date: 20110831
  Serious: Yes (Hospitalization)
  Sender: FDA-Public Use
  Company Number: FR-BRISTOL-MYERS SQUIBB COMPANY-15466808

PATIENT
  Age: 75 Year
  Sex: Female

DRUGS (8)
  1. EUPRESSYL [Concomitant]
  2. CARDENSIEL [Concomitant]
  3. PRAVASTATIN SODIUM [Concomitant]
  4. KARDEGIC [Concomitant]
  5. NOVONORM [Concomitant]
     Dosage: DISCONTINUED.
  6. GLUCOPHAGE [Suspect]
     Indication: TYPE 1 DIABETES MELLITUS
     Route: 048
  7. VASTEN [Concomitant]
  8. TAREG [Concomitant]

REACTIONS (9)
  - ABDOMINAL PAIN [None]
  - HYPOGLYCAEMIA [None]
  - WEIGHT DECREASED [None]
  - LACTIC ACIDOSIS [None]
  - DECREASED APPETITE [None]
  - DIARRHOEA [None]
  - VERTIGO [None]
  - CONFUSIONAL STATE [None]
  - RENAL FAILURE [None]
